FAERS Safety Report 18914681 (Version 1)
Quarter: 2021Q1

REPORT INFORMATION
  Report Type: Spontaneous
  Country: CZ (occurrence: CZ)
  Receive Date: 20210218
  Receipt Date: 20210218
  Transmission Date: 20210420
  Serious: Yes (Other)
  Sender: FDA-Public Use
  Company Number: CZ-US-PROVELL PHARMACEUTICALS LLC-E2B_90082401

PATIENT
  Age: 60 Year
  Sex: Male

DRUGS (4)
  1. EUTHYROX [Suspect]
     Active Substance: LEVOTHYROXINE SODIUM
     Dosage: DOSAGE FOR EMPTY STOMACH 2 DAYS 1?0?0, 5 DAYS 1/2?0?0
     Route: 048
     Dates: start: 202011, end: 20201208
  2. EUTHYROX [Suspect]
     Active Substance: LEVOTHYROXINE SODIUM
     Indication: HORMONE REPLACEMENT THERAPY
     Dosage: DOSAGE 1?0?0
     Route: 048
     Dates: start: 202011, end: 20201208
  3. EUTHYROX [Suspect]
     Active Substance: LEVOTHYROXINE SODIUM
     Dosage: LONG TERM MEDICATION, DOSAGE 2 DAYS 1?0?0, 5 DAYS 1/2?0?0 IN NOV 2020 SWITCH TO NEW BATCH NUMBER
     Route: 048
     Dates: start: 2010, end: 202011
  4. EUTHYROX [Suspect]
     Active Substance: LEVOTHYROXINE SODIUM
     Dosage: LONG TERM MEDICATION, DOSAGE 1?0?0 FOR EMPTY STOMACH ?IN NOVEMBER 2020 SWITCH TO NEW BATCH NUMBER
     Route: 048
     Dates: start: 2010, end: 202011

REACTIONS (3)
  - Suspected product quality issue [Unknown]
  - Drug ineffective [Unknown]
  - Hypothyroidism [Recovered/Resolved]

NARRATIVE: CASE EVENT DATE: 202011
